FAERS Safety Report 10063211 (Version 1)
Quarter: 2014Q2

REPORT INFORMATION
  Report Type: Spontaneous
  Country: JP (occurrence: JP)
  Receive Date: 20140407
  Receipt Date: 20140407
  Transmission Date: 20141212
  Serious: Yes (Other)
  Sender: FDA-Public Use
  Company Number: JP-ASTELLAS-2014JP003197

PATIENT
  Age: 50 Year
  Sex: Female
  Weight: 45.3 kg

DRUGS (5)
  1. PROGRAF [Suspect]
     Indication: IMMUNOSUPPRESSANT DRUG THERAPY
     Dosage: UNK
     Route: 065
     Dates: start: 2012, end: 2012
  2. PROGRAF [Suspect]
     Dosage: UNK
     Route: 065
     Dates: start: 2012
  3. SIMULECT [Concomitant]
     Indication: IMMUNOSUPPRESSANT DRUG THERAPY
     Dosage: UNK
     Route: 065
     Dates: start: 2012
  4. METHYLPREDNISOLONE [Concomitant]
     Indication: IMMUNOSUPPRESSANT DRUG THERAPY
     Dosage: UNK
     Route: 065
     Dates: start: 2012
  5. CELLCEPT                           /01275102/ [Concomitant]
     Indication: IMMUNOSUPPRESSANT DRUG THERAPY
     Dosage: UNK
     Route: 048
     Dates: start: 2012

REACTIONS (3)
  - Drug ineffective [Unknown]
  - Kidney transplant rejection [Unknown]
  - Renal tubular acidosis [Recovered/Resolved]
